FAERS Safety Report 10682268 (Version 3)
Quarter: 2014Q4

REPORT INFORMATION
  Report Type: Report from Study
  Country: CA (occurrence: CA)
  Receive Date: 20141230
  Receipt Date: 20141231
  Transmission Date: 20150529
  Serious: Yes (Other)
  Sender: FDA-Public Use
  Company Number: CA-JNJFOC-20141010750

PATIENT
  Age: 44 Year
  Sex: Male
  Weight: 79 kg

DRUGS (2)
  1. REMICADE [Suspect]
     Active Substance: INFLIXIMAB
     Indication: CROHN^S DISEASE
     Dosage: THE PATIENT UNDERWENT 65 TREATMENTS
     Route: 042
     Dates: start: 2010, end: 20141217
  2. CLINDAMYCIN [Suspect]
     Active Substance: CLINDAMYCIN\CLINDAMYCIN PHOSPHATE
     Indication: TOOTH INFECTION
     Route: 065
     Dates: start: 20141201, end: 201412

REACTIONS (5)
  - Toothache [Unknown]
  - Tooth infection [Unknown]
  - Nasopharyngitis [Unknown]
  - Alveolar osteitis [Unknown]
  - Clostridium difficile infection [Unknown]

NARRATIVE: CASE EVENT DATE: 20141223
